FAERS Safety Report 26186907 (Version 1)
Quarter: 2025Q4

REPORT INFORMATION
  Report Type: Report from Study
  Country: US (occurrence: US)
  Receive Date: 20251222
  Receipt Date: 20251222
  Transmission Date: 20260118
  Serious: Yes (Death, Other)
  Sender: ROCHE
  Company Number: US-ROCHE-10000460625

PATIENT

DRUGS (3)
  1. GLOFITAMAB [Suspect]
     Active Substance: GLOFITAMAB
     Indication: Non-Hodgkin^s lymphoma refractory
  2. MOSUNETUZUMAB [Suspect]
     Active Substance: MOSUNETUZUMAB
     Indication: Non-Hodgkin^s lymphoma refractory
  3. EPCORITAMAB [Suspect]
     Active Substance: EPCORITAMAB
     Indication: Non-Hodgkin^s lymphoma refractory

REACTIONS (22)
  - Cytokine release syndrome [Unknown]
  - Immune effector cell-associated neurotoxicity syndrome [Unknown]
  - Neutropenia [Unknown]
  - Lymphopenia [Unknown]
  - Hypogammaglobulinaemia [Unknown]
  - Appendicitis [Unknown]
  - Oral candidiasis [Unknown]
  - Cellulitis [Unknown]
  - Systemic candida [Fatal]
  - COVID-19 [Unknown]
  - Haematological infection [Unknown]
  - Lower respiratory tract infection [Unknown]
  - Clostridium difficile colitis [Unknown]
  - Cytomegalovirus viraemia [Unknown]
  - Herpes zoster reactivation [Unknown]
  - Bacteraemia [Unknown]
  - Pneumonia [Unknown]
  - Pneumonia fungal [Unknown]
  - Urinary tract infection [Unknown]
  - Osteomyelitis [Unknown]
  - Intervertebral discitis [Unknown]
  - Upper respiratory tract infection [Unknown]
